FAERS Safety Report 6172114-X (Version None)
Quarter: 2009Q2

REPORT INFORMATION
  Report Type: 
  Country: None (occurrence: None)
  Receive Date: 20090428
  Receipt Date: 20090428
  Transmission Date: 20091009
  Serious: Yes (Other)
  Sender: FDA-Public Use
  Company Number: None

PATIENT
  Sex: Female
  Weight: 66.55 kg

DRUGS (1)
  1. ZOSYN [Suspect]
     Indication: ABSCESS
     Dates: start: 20090111, end: 20090127

REACTIONS (1)
  - WHITE BLOOD CELL COUNT DECREASED [None]
